FAERS Safety Report 13698666 (Version 1)
Quarter: 2017Q2

REPORT INFORMATION
  Report Type: Spontaneous
  Country: US (occurrence: US)
  Receive Date: 20170628
  Receipt Date: 20170628
  Transmission Date: 20170830
  Serious: Yes (Other)
  Sender: FDA-Public Use
  Company Number: US-ASTRAZENECA-2017SE66330

PATIENT
  Sex: Female
  Weight: 65.8 kg

DRUGS (1)
  1. FASLODEX [Suspect]
     Active Substance: FULVESTRANT
     Indication: BREAST CANCER METASTATIC
     Route: 030
     Dates: start: 201410, end: 201503

REACTIONS (2)
  - Malignant neoplasm progression [Not Recovered/Not Resolved]
  - Fatigue [Not Recovered/Not Resolved]
